FAERS Safety Report 7632812-5 (Version None)
Quarter: 2011Q3

REPORT INFORMATION
  Report Type: 
  Country: None (occurrence: None)
  Receive Date: 20110701
  Receipt Date: 20100505
  Transmission Date: 20111222
  Serious: Yes (Hospitalization)
  Sender: FDA-Public Use
  Company Number: 7003938

PATIENT
  Age: 52 Year
  Sex: Female
  Weight: 67 kg

DRUGS (4)
  1. REBIF [Suspect]
     Indication: MULTIPLE SCLEROSIS
     Dosage: 44 MCG, 3 IN 1 WK, SUBCUTANEOUS
     Route: 058
     Dates: start: 20091026
  2. UNSPECIFED NARCOTIC (ALL OTHER THERAPEUTIC PRODUCTS) [Concomitant]
  3. UNSPECIFIED BLOOD PRESSURE MEDICATION(ALL OTHER THERAPEUTIC PRODUCTS) [Concomitant]
  4. SYNTHROID [Concomitant]

REACTIONS (3)
  - UNRESPONSIVE TO STIMULI [None]
  - DEHYDRATION [None]
  - STRESS [None]
